FAERS Safety Report 9798106 (Version 1)
Quarter: 2014Q1

REPORT INFORMATION
  Report Type: Spontaneous
  Country: FR (occurrence: None)
  Receive Date: 20140102
  Receipt Date: 20140102
  Transmission Date: 20141002
  Serious: Yes (Life-Threatening)
  Sender: FDA-Public Use
  Company Number: 2016399

PATIENT
  Age: 46 Year
  Sex: Male

DRUGS (1)
  1. ATRACURIUM BESILATE [Suspect]
     Indication: TRACHEOSTOMY
     Route: 042
     Dates: start: 20110912, end: 20110912

REACTIONS (3)
  - Circulatory collapse [None]
  - Generalised erythema [None]
  - Tachycardia [None]
